FAERS Safety Report 11387988 (Version 6)
Quarter: 2015Q4

REPORT INFORMATION
  Report Type: Spontaneous
  Country: US (occurrence: US)
  Receive Date: 20150817
  Receipt Date: 20151117
  Transmission Date: 20160304
  Serious: Yes (Other)
  Sender: FDA-Public Use
  Company Number: US-GLAXOSMITHKLINE-US2015107292

PATIENT
  Sex: Male

DRUGS (8)
  1. ASPIRIN (BABY) [Concomitant]
     Active Substance: ASPIRIN
  2. ADVAIR DISKUS [Suspect]
     Active Substance: FLUTICASONE PROPIONATE\SALMETEROL XINAFOATE
     Indication: ASTHMA
     Dosage: 1 PUFF(S), BID
     Route: 055
     Dates: start: 2003
  3. LIPITOR [Concomitant]
     Active Substance: ATORVASTATIN CALCIUM
  4. FLONASE [Concomitant]
     Active Substance: FLUTICASONE PROPIONATE
  5. LYRICA [Concomitant]
     Active Substance: PREGABALIN
  6. METOPROLOL [Concomitant]
     Active Substance: METOPROLOL
  7. ALBUTEROL INHALER [Concomitant]
     Active Substance: ALBUTEROL
  8. OMEPRAZOLE. [Concomitant]
     Active Substance: OMEPRAZOLE

REACTIONS (5)
  - Dyspnoea [Unknown]
  - Asthma [Unknown]
  - Product quality issue [Unknown]
  - Drug ineffective [Unknown]
  - Choking [Unknown]
